FAERS Safety Report 8641060 (Version 2)
Quarter: 2012Q4

REPORT INFORMATION
  Report Type: 
  Country: US (occurrence: US)
  Receive Date: 20120628
  Receipt Date: 20121025
  Transmission Date: 20130627
  Serious: Yes (Hospitalization)
  Sender: FDA-Public Use
  Company Number: US-BAYER-2012-062340

PATIENT
  Age: 28 Year
  Sex: Female
  Weight: 79.37 kg

DRUGS (4)
  1. YAZ [Suspect]
     Indication: POLYCYSTIC OVARIAN SYNDROME
     Dosage: UNK
     Dates: start: 2008, end: 2009
  2. YAZ [Suspect]
     Indication: PREMENSTRUAL DYSPHORIC DISORDER
  3. ACETAMINOPHEN W/CODEINE [Concomitant]
  4. SPIRONOLACTONE [Concomitant]

REACTIONS (7)
  - Pulmonary embolism [None]
  - Emotional distress [None]
  - Injury [None]
  - Pain [None]
  - Dyspnoea [None]
  - Fatigue [None]
  - Anxiety disorder due to a general medical condition [None]
